FAERS Safety Report 8352583-7 (Version None)
Quarter: 2012Q2

REPORT INFORMATION
  Report Type: 
  Country: None (occurrence: None)
  Receive Date: 20120511
  Receipt Date: 20120410
  Transmission Date: 20120825
  Serious: No
  Sender: FDA-Public Use
  Company Number: US-COVIDIEN/TYCO HEALTHCARE/MALLINCKRODT-T201201420

PATIENT
  Sex: Female
  Weight: 61.224 kg

DRUGS (4)
  1. FLEXERIL [Concomitant]
     Indication: PAIN
     Dosage: ONE OR TWO TABS, PRN
  2. PERCOCET [Concomitant]
     Indication: BREAKTHROUGH PAIN
     Dosage: 10/325 MG, TID
  3. NEURONTIN [Concomitant]
     Indication: NEUROPATHY PERIPHERAL
     Dosage: 400 MG, BID
  4. FENTANYL-100 [Suspect]
     Indication: ARTHRALGIA
     Dosage: 100 UG/HR, Q 72 HOURS
     Route: 062
     Dates: start: 20120201

REACTIONS (2)
  - APPLICATION SITE EROSION [None]
  - DRUG EFFECT DECREASED [None]
